FAERS Safety Report 15128223 (Version 1)
Quarter: 2018Q3

REPORT INFORMATION
  Report Type: Spontaneous
  Country: US (occurrence: US)
  Receive Date: 20180711
  Receipt Date: 20180711
  Transmission Date: 20181010
  Serious: No
  Sender: FDA-Public Use
  Company Number: US-GLENMARK PHARMACEUTICALS-2018GMK035900

PATIENT

DRUGS (2)
  1. CLOTRIMAZOLE/BETAMETHASONE DIPROPIONATE CREAM USP [Suspect]
     Active Substance: BETAMETHASONE DIPROPIONATE\CLOTRIMAZOLE
     Indication: FUNGAL INFECTION
     Dosage: UNK UNK, OD (EVERY NIGHT TIME)
     Route: 061
     Dates: start: 201804
  2. CLOTRIMAZOLE/BETAMETHASONE DIPROPIONATE CREAM USP [Suspect]
     Active Substance: BETAMETHASONE DIPROPIONATE\CLOTRIMAZOLE
     Dosage: UNK UNK, OD (EVERY NIGHT TIME)
     Route: 061
     Dates: start: 20180426

REACTIONS (4)
  - No adverse event [Unknown]
  - Fungal infection [Unknown]
  - Disease recurrence [Unknown]
  - Product use issue [Unknown]
